FAERS Safety Report 9840545 (Version 1)
Quarter: 2014Q1

REPORT INFORMATION
  Report Type: Spontaneous
  Country: US (occurrence: None)
  Receive Date: 20140121
  Receipt Date: 20140121
  Transmission Date: 20141002
  Serious: Yes (Hospitalization)
  Sender: FDA-Public Use
  Company Number: None

PATIENT
  Age: 66 Year
  Sex: Female
  Weight: 83 kg

DRUGS (2)
  1. DAUNORUBICIN [Suspect]
     Dates: start: 20131113
  2. CYTARABINE [Suspect]

REACTIONS (2)
  - Pneumonia [None]
  - Sepsis [None]
